FAERS Safety Report 25098228 (Version 2)
Quarter: 2025Q2

REPORT INFORMATION
  Report Type: Spontaneous
  Country: JP (occurrence: JP)
  Receive Date: 20250320
  Receipt Date: 20250515
  Transmission Date: 20250716
  Serious: Yes (Death, Other)
  Sender: SANOFI AVENTIS
  Company Number: JP-MEIJISEIKA-202501702_P_1

PATIENT
  Age: 66 Year
  Sex: Male

DRUGS (3)
  1. REZUROCK [Suspect]
     Active Substance: BELUMOSUDIL
     Indication: Illness
     Route: 048
     Dates: start: 202409, end: 202411
  2. VORICONAZOLE [Concomitant]
     Active Substance: VORICONAZOLE
     Route: 065
  3. LETERMOVIR [Concomitant]
     Active Substance: LETERMOVIR
     Route: 065

REACTIONS (4)
  - Disease progression [Fatal]
  - Bacteraemia [Unknown]
  - Lung opacity [Unknown]
  - Influenza [Unknown]

NARRATIVE: CASE EVENT DATE: 20241125
